FAERS Safety Report 10475200 (Version 1)
Quarter: 2014Q3

REPORT INFORMATION
  Report Type: Spontaneous
  Country: US (occurrence: None)
  Receive Date: 20140924
  Receipt Date: 20140924
  Transmission Date: 20150326
  Serious: Yes (Hospitalization)
  Sender: FDA-Public Use
  Company Number: None

PATIENT
  Age: 41 Year
  Sex: Male
  Weight: 81.7 kg

DRUGS (18)
  1. GABITRIL [Suspect]
     Active Substance: TIAGABINE HYDROCHLORIDE
  2. CALTRATE [Concomitant]
     Active Substance: CALCIUM CARBONATE
  3. LAMICTAL [Suspect]
     Active Substance: LAMOTRIGINE
     Indication: DEPRESSION
     Dosage: CHRONIC WITH SOME DECEASE
     Route: 048
  4. PROZAC [Suspect]
     Active Substance: FLUOXETINE HYDROCHLORIDE
  5. KEPPRA [Suspect]
     Active Substance: LEVETIRACETAM
  6. PREDNISONE. [Concomitant]
     Active Substance: PREDNISONE
  7. METHADONE [Suspect]
     Active Substance: METHADONE HYDROCHLORIDE
  8. NYSTATIN. [Concomitant]
     Active Substance: NYSTATIN
  9. FLOMAX [Concomitant]
     Active Substance: TAMSULOSIN HYDROCHLORIDE
  10. MORPHINE [Suspect]
     Active Substance: MORPHINE
     Indication: PAIN
     Dosage: CHRONIC WITH SOME DECREASE
  11. KLONOPIN [Suspect]
     Active Substance: CLONAZEPAM
  12. MACRODANTIN [Concomitant]
     Active Substance: NITROFURANTOIN
  13. FOLIC ACID. [Concomitant]
     Active Substance: FOLIC ACID
  14. LAMICTAL [Suspect]
     Active Substance: LAMOTRIGINE
     Indication: PAIN
     Dosage: CHRONIC WITH SOME DECEASE
     Route: 048
  15. KETAMINE [Suspect]
     Active Substance: KETAMINE
  16. METHOTREXATE [Suspect]
     Active Substance: METHOTREXATE
  17. LISINOPRIL. [Concomitant]
     Active Substance: LISINOPRIL
  18. PREVACID [Concomitant]
     Active Substance: LANSOPRAZOLE

REACTIONS (4)
  - Encephalopathy [None]
  - Hypotension [None]
  - Somnolence [None]
  - Accidental overdose [None]

NARRATIVE: CASE EVENT DATE: 20140515
